FAERS Safety Report 10415757 (Version 1)
Quarter: 2014Q3

REPORT INFORMATION
  Report Type: Other
  Country: GB (occurrence: GB)
  Receive Date: 20140828
  Receipt Date: 20140828
  Transmission Date: 20150326
  Serious: Yes (Other)
  Sender: FDA-Public Use
  Company Number: GB-ACTELION-A-CH2014-103999

PATIENT
  Age: 48 Year
  Sex: Male

DRUGS (1)
  1. TRACLEER [Suspect]
     Active Substance: BOSENTAN\BOSENTAN MONOHYDRATE
     Indication: PULMONARY ARTERIAL HYPERTENSION
     Route: 048

REACTIONS (7)
  - Condition aggravated [Unknown]
  - Walking distance test abnormal [Unknown]
  - Cyanosis [Unknown]
  - Oxygen saturation decreased [Unknown]
  - Arteriovenous malformation [Unknown]
  - Pulmonary arterial hypertension [Unknown]
  - Heart and lung transplant [Unknown]
